FAERS Safety Report 8066332-3 (Version None)
Quarter: 2012Q1

REPORT INFORMATION
  Report Type: 
  Country: None (occurrence: None)
  Receive Date: 20120124
  Receipt Date: 20120117
  Transmission Date: 20120608
  Serious: Yes (Death, Hospitalization)
  Sender: FDA-Public Use
  Company Number: GB-ELI_LILLY_AND_COMPANY-GB201201006035

PATIENT
  Age: 61 Year
  Sex: Male
  Weight: 73 kg

DRUGS (7)
  1. MOVIPREP [Concomitant]
  2. GEMCITABINE HYDROCHLORIDE [Suspect]
     Dosage: 1900 MG, UNKNOWN
     Route: 065
     Dates: start: 20100927
  3. PACLITAXEL [Suspect]
     Indication: CHEMOTHERAPY
     Dosage: 333 MG, UNKNOWN
     Route: 065
     Dates: start: 20100927
  4. OTHER PHARMA COMPANY INV DRUG [Suspect]
     Dosage: 9500 MG, UNKNOWN
     Route: 065
     Dates: start: 20100927
  5. NEULASTA [Concomitant]
     Indication: CHEMOTHERAPY
     Dosage: UNK
     Dates: start: 20101003
  6. LANSOPRAZOLE [Concomitant]
     Dosage: UNK
  7. CISPLATIN [Suspect]
     Dosage: 190 MG, UNKNOWN
     Route: 065
     Dates: start: 20100927

REACTIONS (3)
  - BLOOD POTASSIUM DECREASED [None]
  - DEATH [None]
  - RENAL IMPAIRMENT [None]
